FAERS Safety Report 16474723 (Version 1)
Quarter: 2019Q2

REPORT INFORMATION
  Report Type: Spontaneous
  Country: US (occurrence: US)
  Receive Date: 20190625
  Receipt Date: 20190625
  Transmission Date: 20190711
  Serious: Yes (Hospitalization, Other)
  Sender: FDA-Public Use
  Company Number: US-AMGEN-USASP2019099016

PATIENT
  Age: 18 Year
  Sex: Female

DRUGS (2)
  1. PROLIA [Suspect]
     Active Substance: DENOSUMAB
     Indication: PAIN
  2. PROLIA [Suspect]
     Active Substance: DENOSUMAB
     Indication: BONE LESION
     Dosage: 1 MILLIGRAM/KILOGRAM EVERY 6-8 WEEKS
     Route: 058

REACTIONS (10)
  - Off label use [Unknown]
  - Oesophagitis [Unknown]
  - Hypocalcaemia [Unknown]
  - Hypercalcaemia [Unknown]
  - Weight decreased [Unknown]
  - Condition aggravated [Unknown]
  - Rebound effect [Unknown]
  - Hypophosphataemia [Not Recovered/Not Resolved]
  - Nausea [Not Recovered/Not Resolved]
  - Hyperparathyroidism secondary [Unknown]
